FAERS Safety Report 9419312 (Version 1)
Quarter: 2013Q3

REPORT INFORMATION
  Report Type: Spontaneous
  Country: US (occurrence: US)
  Receive Date: 20130725
  Receipt Date: 20130725
  Transmission Date: 20140515
  Serious: No
  Sender: FDA-Public Use
  Company Number: US-GLAXOSMITHKLINE-A1010419A

PATIENT
  Age: 19 Year
  Sex: Female

DRUGS (2)
  1. LAMICTAL XR [Suspect]
     Indication: PRODUCT USED FOR UNKNOWN INDICATION
     Dosage: 700MG PER DAY
     Route: 048
  2. DEPAKOTE [Concomitant]

REACTIONS (6)
  - Vision blurred [Unknown]
  - Headache [Unknown]
  - Vomiting [Unknown]
  - Abdominal discomfort [Unknown]
  - Fatigue [Unknown]
  - Depression [Unknown]
